FAERS Safety Report 7451654-7 (Version None)
Quarter: 2011Q2

REPORT INFORMATION
  Report Type: 
  Country: None (occurrence: None)
  Receive Date: 20110502
  Receipt Date: 20100716
  Transmission Date: 20111010
  Serious: No
  Sender: FDA-Public Use
  Company Number: US-ASTRAZENECA-2010SE33299

PATIENT
  Age: 885 Month
  Sex: Female
  Weight: 68 kg

DRUGS (3)
  1. CRESTOR [Suspect]
     Route: 048
  2. SYNTHROID [Concomitant]
  3. NEXIUM [Suspect]
     Route: 048

REACTIONS (2)
  - CARPAL TUNNEL SYNDROME [None]
  - HYPOAESTHESIA [None]
